FAERS Safety Report 12383681 (Version 13)
Quarter: 2017Q2

REPORT INFORMATION
  Report Type: Report from Study
  Country: CN (occurrence: CN)
  Receive Date: 20160519
  Receipt Date: 20170531
  Transmission Date: 20170830
  Serious: Yes (Hospitalization, Other)
  Sender: FDA-Public Use
  Company Number: PHHY2016CN067501

PATIENT
  Age: 26 Year
  Sex: Male
  Weight: 60 kg

DRUGS (55)
  1. PREDNISONE. [Suspect]
     Active Substance: PREDNISONE
     Dosage: 15 MG, QD
     Route: 065
     Dates: start: 20151105, end: 20151112
  2. PANTOPRAZOLE SODIUM. [Concomitant]
     Active Substance: PANTOPRAZOLE SODIUM
     Dosage: 40 MG, ST
     Route: 042
     Dates: start: 20151027, end: 20151029
  3. PLASMA [Concomitant]
     Active Substance: HUMAN PLASMA
     Indication: ANAEMIA
     Dosage: 400 ML, ST
     Route: 042
     Dates: start: 20151026, end: 20151027
  4. PLASMA [Concomitant]
     Active Substance: HUMAN PLASMA
     Indication: PRODUCT USED FOR UNKNOWN INDICATION
     Dosage: 200 ML, ST
     Route: 042
     Dates: start: 20151230, end: 20160107
  5. POTASSIUM CHLORIDE. [Concomitant]
     Active Substance: POTASSIUM CHLORIDE
     Dosage: 20 ML, QD
     Route: 042
     Dates: start: 20151229, end: 20160104
  6. CICLOSPORIN [Suspect]
     Active Substance: CYCLOSPORINE
     Dosage: 350 MG, QD
     Route: 065
     Dates: start: 20151104, end: 20151229
  7. PREDNISONE. [Suspect]
     Active Substance: PREDNISONE
     Dosage: 10 MG, QD
     Route: 065
     Dates: start: 20151112, end: 20151120
  8. SULFAMETHOXAZOLE [Concomitant]
     Active Substance: SULFAMETHOXAZOLE
     Dosage: 2 DF, Q12H
     Route: 048
     Dates: start: 20160106
  9. GANCICLOVIR. [Concomitant]
     Active Substance: GANCICLOVIR
     Indication: LUNG INFECTION
  10. PENICILLIN [Concomitant]
     Active Substance: PENICILLIN
     Indication: INFECTION PROPHYLAXIS
     Dosage: 8 MIU, BID
     Route: 042
     Dates: start: 20151230, end: 20160113
  11. POTASSIUM CHLORIDE. [Concomitant]
     Active Substance: POTASSIUM CHLORIDE
     Indication: MINERAL SUPPLEMENTATION
     Dosage: 20 ML, ST
     Route: 030
     Dates: start: 20151108, end: 20151108
  12. RECOMBINANT HUMAN ERYTHROPOIETIN [Concomitant]
     Active Substance: ERYTHROPOIETIN
     Indication: ANAEMIA
     Dosage: 10000 IU, QW
     Route: 042
     Dates: start: 20150105, end: 20160108
  13. CICLOSPORIN [Suspect]
     Active Substance: CYCLOSPORINE
     Indication: IMMUNOSUPPRESSANT DRUG THERAPY
     Dosage: 325 MG, QD
     Route: 065
     Dates: start: 20151030, end: 20151104
  14. METHYLPREDNISOLONE. [Suspect]
     Active Substance: METHYLPREDNISOLONE
     Indication: BODY TEMPERATURE INCREASED
     Dosage: 500 MG, QD
     Route: 065
     Dates: start: 20151108, end: 20151110
  15. METHYLPREDNISOLONE. [Suspect]
     Active Substance: METHYLPREDNISOLONE
     Dosage: 40 MG, ST
     Route: 042
     Dates: start: 20151230, end: 20160107
  16. PREDNISONE. [Suspect]
     Active Substance: PREDNISONE
     Indication: IMMUNOSUPPRESSANT DRUG THERAPY
     Dosage: 20 MG, QD
     Route: 065
     Dates: start: 20151029, end: 20151105
  17. AMBROXOL HYDROCHLORIDE [Concomitant]
     Active Substance: AMBROXOL HYDROCHLORIDE
     Indication: LUNG INFECTION
     Dosage: 30 MG, BID
     Route: 055
     Dates: start: 20151229, end: 20160108
  18. AMBROXOL HYDROCHLORIDE [Concomitant]
     Active Substance: AMBROXOL HYDROCHLORIDE
     Dosage: 30 MG, BID
     Route: 055
     Dates: start: 20151201, end: 20151207
  19. PENICILLIN [Concomitant]
     Active Substance: PENICILLIN
     Dosage: 8 MIU, BID (INJECTION)
     Route: 042
     Dates: start: 20151230, end: 20160108
  20. METHYLPREDNISOLONE. [Suspect]
     Active Substance: METHYLPREDNISOLONE
     Dosage: 40 MG, QD
     Route: 065
     Dates: start: 20160104, end: 20160107
  21. PREDNISONE. [Suspect]
     Active Substance: PREDNISONE
     Dosage: 5 MG, QD
     Route: 065
     Dates: start: 20151120
  22. GANCICLOVIR. [Concomitant]
     Active Substance: GANCICLOVIR
     Indication: SUPPLEMENTATION THERAPY
     Dosage: 250 MG, QD
     Route: 042
     Dates: start: 20151111, end: 20151120
  23. GANCICLOVIR. [Concomitant]
     Active Substance: GANCICLOVIR
     Indication: PROPHYLAXIS
     Dosage: 0.25 G, Q12H
     Route: 042
     Dates: start: 20151230, end: 20160113
  24. MICAFUNGIN SODIUM [Concomitant]
     Active Substance: MICAFUNGIN SODIUM
     Dosage: 100 MG, QD
     Route: 042
     Dates: start: 20160111, end: 20160120
  25. PANTOPRAZOLE SODIUM. [Concomitant]
     Active Substance: PANTOPRAZOLE SODIUM
     Indication: GASTROINTESTINAL MUCOSAL DISORDER
     Dosage: 20 MG, QD
     Route: 048
     Dates: start: 20151229, end: 20160108
  26. MYFORTIC [Suspect]
     Active Substance: MYCOPHENOLATE SODIUM
     Indication: RENAL TRANSPLANT
     Dosage: 1440 MG, QD
     Route: 048
     Dates: start: 20151027, end: 20151120
  27. BASILIXIMAB [Suspect]
     Active Substance: BASILIXIMAB
     Indication: RENAL TRANSPLANT
     Dosage: 20 MG, QD
     Route: 065
     Dates: start: 20151026, end: 20151026
  28. PIPERACILIN/TAZOBACTAM [Concomitant]
     Active Substance: PIPERACILLIN SODIUM\TAZOBACTAM SODIUM
     Indication: PROPHYLAXIS
     Dosage: 2.5 G, BID
     Route: 065
     Dates: start: 20160513, end: 20160520
  29. DESMOPRESSIN ACETATE. [Concomitant]
     Active Substance: DESMOPRESSIN ACETATE
     Indication: URINE ABNORMALITY
     Dosage: 0.2 MG, TID
     Route: 048
     Dates: start: 20151128, end: 20151129
  30. ALBUMIN [Concomitant]
     Active Substance: ALBUMIN HUMAN
     Indication: NUTRITIONAL SUPPLEMENTATION
     Dosage: 10 G, QD
     Route: 042
     Dates: start: 20151027, end: 20151027
  31. INDOMETHACIN. [Concomitant]
     Active Substance: INDOMETHACIN
     Indication: BODY TEMPERATURE INCREASED
     Dosage: 0.5 OT, ST
     Route: 054
     Dates: start: 20151230, end: 20151230
  32. PANTOPRAZOLE SODIUM. [Concomitant]
     Active Substance: PANTOPRAZOLE SODIUM
     Indication: GASTROINTESTINAL MUCOSAL DISORDER
     Dosage: 40 MG, ST
     Route: 042
     Dates: start: 20151027, end: 20151029
  33. SODIUM BICARBONATE. [Concomitant]
     Active Substance: SODIUM BICARBONATE
     Indication: ACID BASE BALANCE ABNORMAL
     Dosage: 1 G, TID
     Route: 048
     Dates: start: 20151229, end: 20160108
  34. CICLOSPORIN [Suspect]
     Active Substance: CYCLOSPORINE
     Dosage: 200 MG, QD
     Route: 065
     Dates: start: 20151230
  35. AMBROXOL HYDROCHLORIDE [Concomitant]
     Active Substance: AMBROXOL HYDROCHLORIDE
     Indication: PRODUCTIVE COUGH
     Dosage: 30 MG, BID IVGTT AND SPRAYING INHALATION RESPECTIVELY
     Route: 065
     Dates: start: 20151026, end: 20151105
  36. SULFAMETHOXAZOLE [Concomitant]
     Active Substance: SULFAMETHOXAZOLE
     Indication: INFECTION PROPHYLAXIS
     Dosage: 2 DF, Q6H
     Route: 048
     Dates: start: 20151229, end: 20160105
  37. ALPROSTADIL. [Concomitant]
     Active Substance: ALPROSTADIL
     Indication: CARDIOVASCULAR DISORDER
     Dosage: 10 UG, BID
     Route: 042
     Dates: start: 20151026, end: 20151111
  38. PIPERACILIN/TAZOBACTAM [Concomitant]
     Active Substance: PIPERACILLIN SODIUM\TAZOBACTAM SODIUM
     Dosage: 2.25 MG, BID
     Route: 042
     Dates: start: 20151109, end: 20151118
  39. CALCIMAGON D3 [Concomitant]
     Active Substance: CALCIUM\CHOLECALCIFEROL
     Indication: MINERAL SUPPLEMENTATION
     Dosage: 2 DF (TAB), TID
     Route: 048
     Dates: start: 20151029, end: 20151120
  40. DILTIAZEM HYDROCHLORIDE. [Concomitant]
     Active Substance: DILTIAZEM HYDROCHLORIDE
     Indication: HYPERTENSION
     Dosage: 90 MG, QD
     Route: 048
     Dates: start: 20151114, end: 20151125
  41. PANTOPRAZOLE SODIUM. [Concomitant]
     Active Substance: PANTOPRAZOLE SODIUM
     Dosage: 40 MG, ST
     Route: 042
     Dates: start: 20151108, end: 20151110
  42. PANTOPRAZOLE SODIUM. [Concomitant]
     Active Substance: PANTOPRAZOLE SODIUM
     Dosage: 40 MG, ST
     Route: 042
     Dates: start: 20151108, end: 20151110
  43. PLASMA [Concomitant]
     Active Substance: HUMAN PLASMA
     Dosage: 400 ML, QD
     Route: 042
     Dates: start: 20160104, end: 20160107
  44. MYFORTIC [Suspect]
     Active Substance: MYCOPHENOLATE SODIUM
     Indication: PROPHYLAXIS AGAINST TRANSPLANT REJECTION
     Dosage: 1080 MG, QD
     Route: 048
     Dates: start: 20151120
  45. CICLOSPORIN [Suspect]
     Active Substance: CYCLOSPORINE
     Indication: RENAL TRANSPLANT
     Dosage: 300 MG, QD
     Route: 065
     Dates: start: 20151027, end: 20151030
  46. METHYLPREDNISOLONE. [Suspect]
     Active Substance: METHYLPREDNISOLONE
     Indication: PROPHYLAXIS AGAINST TRANSPLANT REJECTION
     Dosage: 500 MG, QD
     Route: 065
     Dates: start: 20151027, end: 20151029
  47. METHYLPREDNISOLONE. [Suspect]
     Active Substance: METHYLPREDNISOLONE
     Dosage: 40 MG, QD
     Route: 065
     Dates: start: 20151230, end: 20160102
  48. GANCICLOVIR. [Concomitant]
     Active Substance: GANCICLOVIR
     Indication: ANTIFUNGAL PROPHYLAXIS
     Dosage: 250 MG, Q12H
     Route: 042
     Dates: start: 20151129, end: 20151230
  49. MICAFUNGIN SODIUM [Concomitant]
     Active Substance: MICAFUNGIN SODIUM
     Indication: ANTIFUNGAL PROPHYLAXIS
     Dosage: 100 MG, QD
     Route: 042
     Dates: start: 20160103, end: 20160108
  50. PIPERACILIN/TAZOBACTAM [Concomitant]
     Active Substance: PIPERACILLIN SODIUM\TAZOBACTAM SODIUM
     Indication: SUPPLEMENTATION THERAPY
     Dosage: 2.25 G, BID
     Route: 042
     Dates: start: 20151026, end: 20151104
  51. ALBUMIN [Concomitant]
     Active Substance: ALBUMIN HUMAN
     Dosage: 10 G, ST
     Route: 042
     Dates: start: 20160105, end: 20160106
  52. AMLODIPIN BESYLATE AND BENAZEPRIL HYDROCHLORI [Concomitant]
     Active Substance: AMLODIPINE BESYLATE\BENAZEPRIL HYDROCHLORIDE
     Indication: HYPERTENSION
     Dosage: 12.5 MG, BID
     Route: 048
     Dates: start: 20151115, end: 20151125
  53. FUROSEMIDE. [Concomitant]
     Active Substance: FUROSEMIDE
     Indication: POLYURIA
     Dosage: 40 MG, Q6H
     Route: 042
     Dates: start: 20151026, end: 20151027
  54. TOLTERODINE TARTRATE. [Concomitant]
     Active Substance: TOLTERODINE TARTRATE
     Indication: URINE ABNORMALITY
     Dosage: 2 MG, BID
     Route: 048
     Dates: start: 20151106, end: 20151109
  55. VITAMIN B6 [Concomitant]
     Active Substance: PYRIDOXINE HYDROCHLORIDE
     Indication: NUTRITIONAL SUPPLEMENTATION
     Dosage: 20 MG, QD
     Route: 048
     Dates: start: 20151229, end: 20160108

REACTIONS (2)
  - Kidney transplant rejection [Recovered/Resolved]
  - Ureteric stenosis [Recovered/Resolved]

NARRATIVE: CASE EVENT DATE: 20151108
